FAERS Safety Report 4983569-8 (Version None)
Quarter: 2006Q2

REPORT INFORMATION
  Report Type: 
  Country: None (occurrence: None)
  Receive Date: 20060425
  Receipt Date: 20060425
  Transmission Date: 20061013
  Serious: Yes (Other)
  Sender: FDA-Public Use
  Company Number: None

PATIENT
  Age: 56 Year
  Sex: Male
  Weight: 88.9 kg

DRUGS (8)
  1. OMEPRAZOLE [Suspect]
  2. METFORMIN HYDROCHLORIDE [Concomitant]
  3. DIPHENHYDRAMIE HCL [Concomitant]
  4. RANITIDINE HCL [Concomitant]
  5. FELODIPINE [Concomitant]
  6. INSULIN SYRINGE [Concomitant]
  7. SIMVASTATIN [Concomitant]
  8. INSULIN NPH HUMAN     NOVOLIN N [Concomitant]

REACTIONS (2)
  - RASH [None]
  - URTICARIA [None]
